FAERS Safety Report 7711531-0 (Version None)
Quarter: 2011Q3

REPORT INFORMATION
  Report Type: 
  Country: None (occurrence: None)
  Receive Date: 20110826
  Receipt Date: 20110817
  Transmission Date: 20111222
  Serious: Yes (Other)
  Sender: FDA-Public Use
  Company Number: ES-JNJFOC-20110808777

PATIENT
  Age: 83 Year
  Sex: Female

DRUGS (3)
  1. DURAGESIC-100 [Suspect]
     Indication: SPINAL FRACTURE
     Route: 062
     Dates: start: 20110601
  2. BUPRENORPHINE [Suspect]
     Indication: SPINAL FRACTURE
     Route: 062
     Dates: start: 20110601
  3. OXYCONTIN [Suspect]
     Indication: RHEUMATOID ARTHRITIS
     Route: 048
     Dates: start: 20110601

REACTIONS (4)
  - PAIN [None]
  - DRUG WITHDRAWAL SYNDROME [None]
  - DRUG INEFFECTIVE [None]
  - MEDICATION ERROR [None]
